FAERS Safety Report 20442875 (Version 2)
Quarter: 2022Q1

REPORT INFORMATION
  Report Type: Spontaneous
  Country: US (occurrence: US)
  Receive Date: 20220208
  Receipt Date: 20220223
  Transmission Date: 20220423
  Serious: Yes (Other)
  Sender: FDA-Public Use
  Company Number: US-BAYER-2022A018198

PATIENT
  Sex: Female

DRUGS (2)
  1. KYLEENA [Suspect]
     Active Substance: LEVONORGESTREL
     Indication: Menstruation irregular
     Dosage: 17.5?G/DAY
     Route: 015
     Dates: start: 20190820
  2. KYLEENA [Suspect]
     Active Substance: LEVONORGESTREL
     Indication: Contraception

REACTIONS (2)
  - Genital haemorrhage [None]
  - Abdominal pain [None]
